FAERS Safety Report 8347689-2 (Version None)
Quarter: 2012Q2

REPORT INFORMATION
  Report Type: 
  Country: None (occurrence: None)
  Receive Date: 20120509
  Receipt Date: 20120502
  Transmission Date: 20120825
  Serious: Yes (Other)
  Sender: FDA-Public Use
  Company Number: US-ALLERGAN-1203890US

PATIENT
  Age: 40 Year
  Sex: Female

DRUGS (3)
  1. BOTOX COSMETIC [Suspect]
     Indication: SKIN WRINKLING
     Dosage: UNK
     Route: 030
     Dates: start: 20110101, end: 20110101
  2. SYNTHROID [Concomitant]
     Indication: HYPOTHYROIDISM
     Dosage: UNK
     Route: 048
  3. DYSPORT [Suspect]
     Indication: SKIN WRINKLING

REACTIONS (4)
  - SYNOVIAL CYST [None]
  - SUBMANDIBULAR MASS [None]
  - HAEMOPHILUS TEST POSITIVE [None]
  - CORYNEBACTERIUM TEST POSITIVE [None]
